FAERS Safety Report 5064724-8 (Version None)
Quarter: 2006Q3

REPORT INFORMATION
  Report Type: 
  Country: None (occurrence: None)
  Receive Date: 20060728
  Receipt Date: 20060719
  Transmission Date: 20061208
  Serious: Yes (Hospitalization)
  Sender: FDA-Public Use
  Company Number: JP-ROCHE-456646

PATIENT
  Age: 24 Year
  Sex: Female

DRUGS (1)
  1. TAMIFLU [Suspect]
     Dosage: THERAPY START DATE WAS REPORTED AS 28 MARCH AND THERAPY STOP DATE WAS REPORTED AS 31 MARCH (NO YEAR+
     Route: 065

REACTIONS (1)
  - ABNORMAL BEHAVIOUR [None]
